FAERS Safety Report 13260379 (Version 1)
Quarter: 2017Q1

REPORT INFORMATION
  Report Type: Spontaneous
  Country: US (occurrence: US)
  Receive Date: 20170222
  Receipt Date: 20170222
  Transmission Date: 20170428
  Serious: No
  Sender: FDA-Public Use
  Company Number: None

PATIENT
  Age: 72 Year
  Sex: Female
  Weight: 61.24 kg

DRUGS (5)
  1. OFLOXACIN 0.3% OPA SOLN SML (EYE) [Suspect]
     Active Substance: OFLOXACIN
     Indication: EYE INFECTION
     Dosage: 4 X DAY FOR 3 DAYS ONLY, DROP IN RIGHT EYE ONLY
     Route: 047
     Dates: start: 20170111, end: 20170114
  2. VITAMIN D3 [Concomitant]
     Active Substance: CHOLECALCIFEROL
  3. VITAMIN C [Concomitant]
     Active Substance: ASCORBIC ACID
  4. VITAMIN B12 [Concomitant]
     Active Substance: CYANOCOBALAMIN
  5. OTC ALLERGY PILLS [Concomitant]

REACTIONS (2)
  - Vision blurred [None]
  - Halo vision [None]

NARRATIVE: CASE EVENT DATE: 20170113
